FAERS Safety Report 8170416-9 (Version None)
Quarter: 2012Q1

REPORT INFORMATION
  Report Type: 
  Country: None (occurrence: None)
  Receive Date: 20120228
  Receipt Date: 20120222
  Transmission Date: 20120608
  Serious: Yes (Death)
  Sender: FDA-Public Use
  Company Number: US-PFIZER INC-2012047179

PATIENT
  Sex: Male

DRUGS (1)
  1. REVATIO [Suspect]
     Indication: PULMONARY ARTERIAL HYPERTENSION
     Dosage: 2X20MG, 3X/DAY
     Dates: start: 20120125

REACTIONS (2)
  - PULMONARY HYPERTENSION [None]
  - DISEASE PROGRESSION [None]
